FAERS Safety Report 10020573 (Version 1)
Quarter: 2014Q1

REPORT INFORMATION
  Report Type: Spontaneous
  Country: FR (occurrence: FR)
  Receive Date: 20140319
  Receipt Date: 20140319
  Transmission Date: 20141002
  Serious: Yes (Hospitalization)
  Sender: FDA-Public Use
  Company Number: PHHY2014FR031646

PATIENT
  Age: 63 Year
  Sex: Female

DRUGS (12)
  1. TEGRETOL [Suspect]
     Indication: EPILEPSY
     Dosage: 1.5 DF, BID
     Route: 048
     Dates: start: 20130322
  2. ZYPREXA [Concomitant]
     Indication: PERSONALITY DISORDER
     Dosage: 5 MG, QD
     Route: 048
     Dates: start: 20140214, end: 20140221
  3. ALEPSAL                            /01606601/ [Concomitant]
     Indication: EPILEPSY
     Dosage: 50 MG, BID
     Route: 048
     Dates: start: 20130322
  4. DEPAKINE CHRONO [Concomitant]
     Indication: EPILEPSY
     Dosage: 1.5 DF, BID
     Dates: start: 20130322
  5. LARGACTIL [Concomitant]
     Indication: PERSONALITY DISORDER
     Dosage: 40 MG (15 DRP BID AND 50 DRP ONCE)
     Route: 048
     Dates: start: 20130322, end: 20140215
  6. URBANYL [Concomitant]
     Indication: ALCOHOLISM
     Dosage: 0.5 DF, BID
  7. INEXIUM//ESOMEPRAZOLE SODIUM [Concomitant]
     Dosage: 40 MG, QD
  8. CALTRATE [Concomitant]
     Dosage: 600 MG, BID
  9. DAFALGAN CODEINE [Concomitant]
     Dosage: UNK UKN, UNK
  10. IMOVANE [Concomitant]
     Dosage: 7.5 MG, UNK
  11. MACROGOL 4000 [Concomitant]
     Dosage: 2 DF, BID
  12. TAHOR [Concomitant]
     Dosage: UNK UKN, UNK

REACTIONS (4)
  - Confusional state [Unknown]
  - Leukopenia [Recovering/Resolving]
  - Neutropenia [Recovering/Resolving]
  - Hyponatraemia [Recovering/Resolving]
